FAERS Safety Report 11272806 (Version 1)
Quarter: 2015Q3

REPORT INFORMATION
  Report Type: Spontaneous
  Country: US (occurrence: None)
  Receive Date: 20150713
  Receipt Date: 20150713
  Transmission Date: 20151125
  Serious: Yes (Life-Threatening, Hospitalization, Disabling, Other)
  Sender: FDA-Public Use
  Company Number: None

PATIENT
  Age: 75 Year
  Sex: Male
  Weight: 116 kg

DRUGS (12)
  1. MIDAZOLAM [Concomitant]
     Active Substance: MIDAZOLAM\MIDAZOLAM HYDROCHLORIDE
  2. ADENOSINE. [Concomitant]
     Active Substance: ADENOSINE
  3. MEPERIDINE [Concomitant]
     Active Substance: MEPERIDINE
  4. METOPROLOL [Concomitant]
     Active Substance: METOPROLOL
  5. DOPAMINE [Concomitant]
     Active Substance: DOPAMINE\DOPAMINE HYDROCHLORIDE
  6. VERAPAMIL [Concomitant]
     Active Substance: VERAPAMIL HYDROCHLORIDE
  7. KETAMINE [Concomitant]
     Active Substance: KETAMINE
  8. ROCURONIUM [Concomitant]
     Active Substance: ROCURONIUM BROMIDE
  9. HEPARIN [Suspect]
     Active Substance: HEPARIN SODIUM
     Indication: ANTICOAGULANT THERAPY
     Dosage: 5,000 UNITS
     Route: 042
     Dates: start: 20150622, end: 20150622
  10. AMINOCAPROIC ACID. [Concomitant]
     Active Substance: AMINOCAPROIC ACID
  11. PROMETHAZINE [Concomitant]
     Active Substance: PROMETHAZINE\PROMETHAZINE HYDROCHLORIDE
  12. PROTAMINE [Concomitant]
     Active Substance: PROTAMINE

REACTIONS (4)
  - Heparin-induced thrombocytopenia [None]
  - Acute kidney injury [None]
  - Pleural effusion [None]
  - Haemorrhage [None]

NARRATIVE: CASE EVENT DATE: 20150702
